FAERS Safety Report 15000640 (Version 1)
Quarter: 2018Q2

REPORT INFORMATION
  Report Type: Spontaneous
  Country: US (occurrence: US)
  Receive Date: 20180523
  Receipt Date: 20180523
  Transmission Date: 20180711
  Serious: Yes (Disabling, Other)
  Sender: FDA-Public Use
  Company Number: None

PATIENT
  Age: 31 Year
  Sex: Female
  Weight: 91.8 kg

DRUGS (3)
  1. METRONIDAZOLE. [Concomitant]
     Active Substance: METRONIDAZOLE
  2. VANDAZOLE [Suspect]
     Active Substance: METRONIDAZOLE
     Indication: BACTERIAL VAGINOSIS
     Route: 067
     Dates: start: 20180326, end: 20180327
  3. DIFLUCAN [Concomitant]
     Active Substance: FLUCONAZOLE

REACTIONS (9)
  - Hypoaesthesia [None]
  - Pharyngeal hypoaesthesia [None]
  - Respiratory disorder [None]
  - Impaired work ability [None]
  - Pharyngeal paraesthesia [None]
  - Paraesthesia [None]
  - Rash [None]
  - Nervous system disorder [None]
  - Photophobia [None]

NARRATIVE: CASE EVENT DATE: 20180326
